FAERS Safety Report 6085539-8 (Version None)
Quarter: 2009Q1

REPORT INFORMATION
  Report Type: 
  Country: None (occurrence: None)
  Receive Date: 20090217
  Receipt Date: 20090217
  Transmission Date: 20090719
  Serious: Yes (Other)
  Sender: FDA-Public Use
  Company Number: None

PATIENT
  Age: 65 Year
  Sex: Female
  Weight: 54.4316 kg

DRUGS (2)
  1. LEVAQUIN [Suspect]
     Indication: ORAL INFECTION
     Dosage: 1 PER DAY PO
     Route: 048
     Dates: start: 20081224, end: 20081226
  2. LEVAQUIN [Suspect]
     Indication: TOOTH INFECTION
     Dosage: 1 PER DAY PO
     Route: 048
     Dates: start: 20081224, end: 20081226

REACTIONS (11)
  - ABASIA [None]
  - ACTIVITIES OF DAILY LIVING IMPAIRED [None]
  - BACK PAIN [None]
  - CHILLS [None]
  - HYPOAESTHESIA [None]
  - JOINT STIFFNESS [None]
  - MUSCLE INJURY [None]
  - MUSCULOSKELETAL STIFFNESS [None]
  - PAIN IN EXTREMITY [None]
  - PYREXIA [None]
  - TENDON INJURY [None]
